FAERS Safety Report 9026077 (Version 1)
Quarter: 2013Q1

REPORT INFORMATION
  Report Type: Spontaneous
  Country: IT (occurrence: IT)
  Receive Date: 20130122
  Receipt Date: 20130122
  Transmission Date: 20140127
  Serious: Yes (Hospitalization)
  Sender: FDA-Public Use
  Company Number: IT-ROCHE-1180347

PATIENT
  Sex: Male

DRUGS (2)
  1. ROCEFIN [Suspect]
     Indication: BRONCHITIS
     Route: 030
     Dates: start: 20121227, end: 20121227
  2. VALPRESSION [Concomitant]
     Route: 048

REACTIONS (4)
  - Erythema [Unknown]
  - Pruritus [Unknown]
  - Respiratory fatigue [Unknown]
  - Jugular vein distension [Unknown]
